FAERS Safety Report 7630252-6 (Version None)
Quarter: 2011Q3

REPORT INFORMATION
  Report Type: 
  Country: None (occurrence: None)
  Receive Date: 20110722
  Receipt Date: 20110711
  Transmission Date: 20111222
  Serious: Yes (Hospitalization, Other)
  Sender: FDA-Public Use
  Company Number: US-BAYER-2011-017324

PATIENT
  Age: 32 Year
  Sex: Female
  Weight: 70.295 kg

DRUGS (10)
  1. YAZ [Suspect]
     Indication: CONTRACEPTION
  2. ORTHO TRI-CYCLEN [Concomitant]
     Dosage: UNK
     Dates: start: 20090519
  3. NAPROXEN (ALEVE) [Concomitant]
     Indication: HEADACHE
  4. CLARITHROMYCIN [Concomitant]
     Indication: SINUSITIS
     Dosage: 500 MG, UNK
     Dates: start: 20090402
  5. YAZ [Suspect]
     Indication: ACNE
     Dosage: UNK
     Dates: start: 20090402, end: 20090519
  6. FLUOXETINE [Concomitant]
     Indication: PREMENSTRUAL SYNDROME
     Dosage: UNK
     Dates: start: 20090101
  7. CEFPROZIL [Concomitant]
     Indication: INFECTION
     Dosage: 500 MG, UNK
     Dates: start: 20090203
  8. POLY HISTINE FORTE [Concomitant]
     Indication: SINUSITIS
     Dosage: UNK
     Dates: start: 20090203
  9. NAPROXEN (ALEVE) [Concomitant]
     Indication: NECK PAIN
  10. YAZ [Suspect]
     Indication: PREMENSTRUAL SYNDROME

REACTIONS (4)
  - INJURY [None]
  - PULMONARY EMBOLISM [None]
  - DEEP VEIN THROMBOSIS [None]
  - PAIN [None]
